FAERS Safety Report 13526643 (Version 1)
Quarter: 2017Q2

REPORT INFORMATION
  Report Type: Spontaneous
  Country: US (occurrence: US)
  Receive Date: 20170508
  Receipt Date: 20170508
  Transmission Date: 20170830
  Serious: No
  Sender: FDA-Public Use
  Company Number: None

PATIENT
  Age: 24 Year
  Sex: Male

DRUGS (1)
  1. SUTENT [Suspect]
     Active Substance: SUNITINIB MALATE
     Indication: SOFT TISSUE SARCOMA
     Route: 048
     Dates: start: 20170405

REACTIONS (8)
  - Diarrhoea [None]
  - Gingival bleeding [None]
  - Glossodynia [None]
  - Hair colour changes [None]
  - Nausea [None]
  - Dysgeusia [None]
  - Fatigue [None]
  - Weight decreased [None]
